FAERS Safety Report 7952105-6 (Version None)
Quarter: 2011Q4

REPORT INFORMATION
  Report Type: 
  Country: None (occurrence: None)
  Receive Date: 20111201
  Receipt Date: 20111123
  Transmission Date: 20120403
  Serious: Yes (Hospitalization, Other)
  Sender: FDA-Public Use
  Company Number: PHHY2008CA30093

PATIENT
  Sex: Male

DRUGS (1)
  1. ZOMETA [Suspect]
     Indication: PROSTATE CANCER
     Dosage: 4 MG, QMO
     Route: 042
     Dates: start: 20080427

REACTIONS (9)
  - BLOOD CREATININE INCREASED [None]
  - CHEST PAIN [None]
  - PROSTATIC SPECIFIC ANTIGEN INCREASED [None]
  - HAEMOGLOBIN DECREASED [None]
  - GLOMERULAR FILTRATION RATE DECREASED [None]
  - PULMONARY EMBOLISM [None]
  - RED BLOOD CELL COUNT DECREASED [None]
  - HAEMATOCRIT DECREASED [None]
  - MEAN CELL VOLUME INCREASED [None]
